FAERS Safety Report 24326247 (Version 1)
Quarter: 2024Q3

REPORT INFORMATION
  Report Type: Spontaneous
  Country: DE (occurrence: DE)
  Receive Date: 20240917
  Receipt Date: 20240917
  Transmission Date: 20241017
  Serious: Yes (Death)
  Sender: CHEPLAPHARM
  Company Number: DE-ROCHE-447400

PATIENT
  Age: 43 Year
  Sex: Female
  Weight: 67 kg

DRUGS (10)
  1. CAPECITABINE [Suspect]
     Active Substance: CAPECITABINE
     Indication: Breast cancer metastatic
     Dosage: BID ON DAYS 1-14 OF 3 WEEK CYCLE.?DAILY DOSE: 2000 MILLIGRAM/M?
     Route: 042
     Dates: start: 20060306, end: 20060424
  2. HERCEPTIN [Suspect]
     Active Substance: TRASTUZUMAB
     Indication: Breast cancer metastatic
     Dosage: INTRAVENOUS BOLUS
     Dates: start: 20060306, end: 20060509
  3. HERCEPTIN [Suspect]
     Active Substance: TRASTUZUMAB
     Indication: Breast cancer metastatic
     Dosage: INTRAVENOUS BOLUS, EVERY THREE WEEKS AT 6 MG/KG WITHIN 90 MINUTES
     Dates: end: 20060509
  4. DEXAMETHASONE [Concomitant]
     Active Substance: DEXAMETHASONE
     Indication: Breast cancer metastatic
     Dosage: SHORT-TERM INFUSION ON DAYS 1 AND 8 WITHIN A THREE WEEK CYCLE
     Dates: start: 20060509
  5. ZOMETA [Concomitant]
     Active Substance: ZOLEDRONIC ACID
     Indication: Metastases to bone
     Dates: start: 200510
  6. ZOMETA [Concomitant]
     Active Substance: ZOLEDRONIC ACID
     Indication: Metastases to bone
     Dates: start: 20051220, end: 200601
  7. NAVELBINE [Concomitant]
     Active Substance: VINORELBINE TARTRATE
     Indication: Breast cancer metastatic
     Dosage: GIVEN ON DAYS 1 AND 8 OF 3 WEEK CYCLE.
     Route: 042
     Dates: start: 20060306, end: 20060509
  8. TAXOTERE [Concomitant]
     Active Substance: DOCETAXEL
     Indication: Invasive lobular breast carcinoma
     Dosage: TAC: 6 CYCLES
  9. Adramycin [Concomitant]
     Indication: Invasive lobular breast carcinoma
     Dosage: TAC: 6 CYCLES
  10. CYCLOPHOSPHAMIDE [Concomitant]
     Active Substance: CYCLOPHOSPHAMIDE
     Indication: Invasive lobular breast carcinoma
     Dosage: TAC: 6 CYCLES

REACTIONS (11)
  - Anaphylactic reaction [Fatal]
  - Pulmonary oedema [Fatal]
  - Circulatory collapse [Fatal]
  - Palmar-plantar erythrodysaesthesia syndrome [Fatal]
  - Pyrexia [Fatal]
  - Feeling hot [Fatal]
  - Anxiety [Fatal]
  - Paraesthesia [Fatal]
  - Dyspnoea [Fatal]
  - Death [Fatal]
  - Cough [Unknown]

NARRATIVE: CASE EVENT DATE: 20060401
